FAERS Safety Report 16686039 (Version 4)
Quarter: 2019Q4

REPORT INFORMATION
  Report Type: Spontaneous
  Country: FR (occurrence: FR)
  Receive Date: 20190809
  Receipt Date: 20191007
  Transmission Date: 20200122
  Serious: Yes (Hospitalization, Other)
  Sender: FDA-Public Use
  Company Number: FR-ACCORD-150572

PATIENT
  Age: 69 Year
  Sex: Female
  Weight: 63 kg

DRUGS (17)
  1. DAFALGAN [Suspect]
     Active Substance: ACETAMINOPHEN
     Indication: RHEUMATOID ARTHRITIS
     Route: 048
  2. ARAVA [Suspect]
     Active Substance: LEFLUNOMIDE
     Indication: RHEUMATOID ARTHRITIS
     Dosage: 20 MG,1 IN 1 D
     Route: 048
  3. CORTANCYL [Suspect]
     Active Substance: PREDNISONE
     Indication: RHEUMATOID ARTHRITIS
     Dosage: 5 MG,1 IN 1 D
     Route: 048
  4. ACTONEL [Suspect]
     Active Substance: RISEDRONATE SODIUM
     Indication: OSTEOPOROSIS
     Dosage: 1 IN 1 D
     Route: 048
     Dates: start: 200611, end: 2009
  5. OROCAL D3 [Suspect]
     Active Substance: CALCIUM CARBONATE\CHOLECALCIFEROL
     Indication: PRODUCT USED FOR UNKNOWN INDICATION
     Route: 048
  6. ZELITREX [Concomitant]
     Active Substance: VALACYCLOVIR HYDROCHLORIDE
     Indication: ORAL HERPES
     Dosage: TWICE PER DAY (1 IN 1 D)
     Route: 048
     Dates: start: 20100820, end: 20100827
  7. MABTHERA [Suspect]
     Active Substance: RITUXIMAB
     Indication: RHEUMATOID ARTHRITIS
     Route: 041
     Dates: end: 20100722
  8. COLECALCIFEROL [Suspect]
     Active Substance: CHOLECALCIFEROL
     Indication: PRODUCT USED FOR UNKNOWN INDICATION
     Dosage: 0.25 (IU)/1
  9. VALSARTAN. [Suspect]
     Active Substance: VALSARTAN
     Indication: HYPERTENSION
     Route: 048
  10. AMOXICILLIN. [Concomitant]
     Active Substance: AMOXICILLIN
     Indication: GINGIVITIS ULCERATIVE
  11. METHOTREXATE. [Suspect]
     Active Substance: METHOTREXATE
     Indication: RHEUMATOID ARTHRITIS
     Route: 065
  12. PREDNISOLONE. [Suspect]
     Active Substance: PREDNISOLONE
     Indication: RHEUMATOID ARTHRITIS
     Dosage: 1 IN 1 DAY
     Dates: start: 2006
  13. PARACETAMOL [Suspect]
     Active Substance: ACETAMINOPHEN
     Indication: PRODUCT USED FOR UNKNOWN INDICATION
     Dosage: 3 DOSAGE FORM EVERY 1 DAY
     Route: 048
  14. OFLOCET [Concomitant]
     Active Substance: OFLOXACIN
     Dosage: 800 MG 1 IN A D
     Route: 048
     Dates: start: 20100820, end: 20100823
  15. VALSARTAN. [Suspect]
     Active Substance: VALSARTAN
     Indication: HYPERTENSION
     Dosage: GELULE
     Route: 048
  16. OESCLIM [Suspect]
     Active Substance: ESTRADIOL
     Indication: HORMONE REPLACEMENT THERAPY
     Route: 062
  17. FLAGYL [Concomitant]
     Active Substance: METRONIDAZOLE\METRONIDAZOLE HYDROCHLORIDE
     Indication: GINGIVITIS ULCERATIVE

REACTIONS (6)
  - Acute kidney injury [Unknown]
  - Oral herpes [Recovered/Resolved]
  - Gingivitis ulcerative [Unknown]
  - Osteonecrosis of jaw [Unknown]
  - Periodontal disease [Unknown]
  - Gastroenteritis [Unknown]

NARRATIVE: CASE EVENT DATE: 201008
